FAERS Safety Report 5735710-7 (Version None)
Quarter: 2008Q2

REPORT INFORMATION
  Report Type: 
  Country: None (occurrence: None)
  Receive Date: 20080513
  Receipt Date: 20080508
  Transmission Date: 20081010
  Serious: Yes (Other)
  Sender: FDA-Public Use
  Company Number: GB-SP-2008-01470

PATIENT
  Age: 50 Year
  Sex: Female

DRUGS (1)
  1. IMMUCYST [Suspect]
     Indication: BLADDER CANCER
     Route: 043

REACTIONS (8)
  - BLADDER DISORDER [None]
  - BLADDER PAIN [None]
  - CONTRACTED BLADDER [None]
  - CYSTITIS [None]
  - INFLAMMATION [None]
  - MICTURITION URGENCY [None]
  - NOCTURIA [None]
  - POLLAKIURIA [None]
